FAERS Safety Report 17613929 (Version 1)
Quarter: 2020Q2

REPORT INFORMATION
  Report Type: Spontaneous
  Country: US (occurrence: US)
  Receive Date: 20200402
  Receipt Date: 20200402
  Transmission Date: 20200713
  Serious: No
  Sender: FDA-Public Use
  Company Number: US-GLAXOSMITHKLINE-US2020053248

PATIENT
  Age: 70 Year
  Sex: Female

DRUGS (1)
  1. VALACYCLOVIR [Suspect]
     Active Substance: VALACYCLOVIR HYDROCHLORIDE
     Indication: HERPES OPHTHALMIC
     Dosage: 1 G, TID
     Route: 048
     Dates: start: 202003

REACTIONS (4)
  - Blood pressure decreased [Unknown]
  - Pruritus [Unknown]
  - Drug ineffective [Unknown]
  - Intraocular pressure decreased [Unknown]
